FAERS Safety Report 4390848-4 (Version None)
Quarter: 2004Q3

REPORT INFORMATION
  Report Type: 
  Country: None (occurrence: None)
  Receive Date: 20040702
  Receipt Date: 20040702
  Transmission Date: 20050211
  Serious: Yes (Death)
  Sender: FDA-Public Use
  Company Number: None

PATIENT
  Age: 35 Year
  Sex: Female
  Weight: 63.5036 kg

DRUGS (18)
  1. PROZAC [Suspect]
     Indication: BIPOLAR DISORDER
     Dosage: 1 PILL 2 X DAY ORAL
     Route: 048
     Dates: start: 19970415, end: 20020718
  2. PROZAC [Suspect]
     Indication: BORDERLINE PERSONALITY DISORDER
     Dosage: 1 PILL 2 X DAY ORAL
     Route: 048
     Dates: start: 19970415, end: 20020718
  3. PROZAC [Suspect]
     Indication: OBSESSIVE-COMPULSIVE DISORDER
     Dosage: 1 PILL 2 X DAY ORAL
     Route: 048
     Dates: start: 19970415, end: 20020718
  4. PROZAC [Suspect]
     Indication: POST-TRAUMATIC STRESS DISORDER
     Dosage: 1 PILL 2 X DAY ORAL
     Route: 048
     Dates: start: 19970415, end: 20020718
  5. PAXIL [Suspect]
     Indication: BIPOLAR DISORDER
     Dosage: 1 PILL ORAL
     Route: 048
     Dates: start: 19940910, end: 19970314
  6. PAXIL [Suspect]
     Indication: BORDERLINE PERSONALITY DISORDER
     Dosage: 1 PILL ORAL
     Route: 048
     Dates: start: 19940910, end: 19970314
  7. PAXIL [Suspect]
     Indication: POST-TRAUMATIC STRESS DISORDER
     Dosage: 1 PILL ORAL
     Route: 048
     Dates: start: 19940910, end: 19970314
  8. OVER THE COUNTER ALLERGY MEDICINE [Concomitant]
  9. NAVANE [Concomitant]
  10. VALIUM [Concomitant]
  11. XANAX [Concomitant]
  12. VOCODIN [Concomitant]
  13. ANTI-INFLAMMATORIES [Concomitant]
  14. MOTRIN [Concomitant]
  15. ADVIL [Concomitant]
  16. NO-DOZE [Concomitant]
  17. ANTI-DEPRESSANTS [Concomitant]
  18. NORALEPTICS [Concomitant]

REACTIONS (8)
  - AKATHISIA [None]
  - ARRHYTHMIA [None]
  - DRUG TOXICITY [None]
  - HEADACHE [None]
  - HYPERTENSION [None]
  - OSTEOARTHRITIS [None]
  - PITUITARY TUMOUR [None]
  - WEIGHT DECREASED [None]
